FAERS Safety Report 9442867 (Version 1)
Quarter: 2013Q3

REPORT INFORMATION
  Report Type: Spontaneous
  Country: CH (occurrence: CH)
  Receive Date: 20130806
  Receipt Date: 20130806
  Transmission Date: 20140515
  Serious: Yes (Death, Hospitalization, Other)
  Sender: FDA-Public Use
  Company Number: CH-MERCK-1308CHE001707

PATIENT
  Age: 80 Year
  Sex: Male

DRUGS (6)
  1. RENITEN-MITE [Suspect]
     Indication: ESSENTIAL HYPERTENSION
     Dosage: 10 MG, QD; STARTED AT LEAST 10 YEARS AGO
     Route: 048
     Dates: end: 20130630
  2. VELMETIA [Suspect]
     Indication: TYPE 2 DIABETES MELLITUS
     Dosage: 50MG/1000MG TABLET, BID
     Route: 048
     Dates: start: 20130206, end: 20130630
  3. FLECTOR EP TISSUGEL [Suspect]
     Indication: PAIN
     Dosage: 182 MG, ONCE
     Route: 061
     Dates: start: 20130630, end: 20130701
  4. CRESTOR [Concomitant]
     Indication: LIPID METABOLISM DISORDER
     Dosage: 5 MG, QD
     Route: 048
     Dates: start: 201203, end: 20130630
  5. ASPIRIN CARDIO [Concomitant]
     Indication: TYPE 2 DIABETES MELLITUS
     Dosage: 100 MG, QD; AT LEAST SINCE 10 YEARS
     Route: 048
  6. DAFALGAN [Concomitant]
     Indication: PAIN
     Dosage: UNSPECIFIED POSOLOGY; ONCE PER DAY IN THE MORNING, MORE IF NECESSARY; SINCE SEVERAL YEARS
     Route: 048

REACTIONS (4)
  - Angioedema [Fatal]
  - Laryngeal oedema [Fatal]
  - Oedema mouth [Fatal]
  - Respiratory depression [Fatal]
